FAERS Safety Report 19834662 (Version 1)
Quarter: 2021Q3

REPORT INFORMATION
  Report Type: Other
  Country: US (occurrence: US)
  Receive Date: 20210915
  Receipt Date: 20210915
  Transmission Date: 20211014
  Serious: No
  Sender: FDA-Public Use
  Company Number: US-LEADIANT BIOSCIENCES INC-2020STPI000367

PATIENT
  Sex: Male

DRUGS (1)
  1. MATULANE [Suspect]
     Active Substance: PROCARBAZINE HYDROCHLORIDE
     Indication: BRAIN NEOPLASM MALIGNANT
     Dosage: 50 MG, TAKE 2 CAPSULES PO DAILY FOR 14 DAYS STARTING ON DAY 8 OF EACH CYCLE
     Route: 048
     Dates: start: 20200128

REACTIONS (2)
  - Nausea [Unknown]
  - Vomiting [Unknown]
